FAERS Safety Report 10034104 (Version 1)
Quarter: 2014Q1

REPORT INFORMATION
  Report Type: Spontaneous
  Country: US (occurrence: None)
  Receive Date: 20140324
  Receipt Date: 20140324
  Transmission Date: 20141002
  Serious: Yes (Other)
  Sender: FDA-Public Use
  Company Number: None

PATIENT
  Age: 54 Year
  Sex: Female
  Weight: 113.4 kg

DRUGS (1)
  1. VOLTAREN [Suspect]
     Indication: ARTHRITIS
     Dosage: 4 GM FOUR TIMES DAILY

REACTIONS (4)
  - Hypoaesthesia oral [None]
  - Pruritus [None]
  - Lip swelling [None]
  - Pain [None]
